FAERS Safety Report 5065106-5 (Version None)
Quarter: 2006Q3

REPORT INFORMATION
  Report Type: 
  Country: None (occurrence: None)
  Receive Date: 20060727
  Receipt Date: 20060727
  Transmission Date: 20061208
  Serious: Yes (Hospitalization)
  Sender: FDA-Public Use
  Company Number: None

PATIENT
  Age: 54 Year
  Sex: Male
  Weight: 88.4514 kg

DRUGS (7)
  1. HYDROCHLOROTHIAZIDE [Suspect]
     Indication: HYPERTENSION
     Dosage: PO; DOSE UNKNOWN
     Route: 048
  2. PRINIVIL [Suspect]
     Indication: HYPERTENSION
     Dosage: PO 20 MG
     Route: 048
  3. VERAPAMIL EXTENDED-RELEASE [Concomitant]
  4. ASPIRIN [Concomitant]
  5. PROBENECID [Concomitant]
  6. PRINIVIL [Concomitant]
  7. HYDROCHLOROTHIAZIDE [Concomitant]

REACTIONS (1)
  - PANCREATITIS [None]
